FAERS Safety Report 4753777-X (Version None)
Quarter: 2005Q3

REPORT INFORMATION
  Report Type: 
  Country: None (occurrence: None)
  Receive Date: 20050825
  Receipt Date: 20050808
  Transmission Date: 20060218
  Serious: Yes (Other)
  Sender: FDA-Public Use
  Company Number: TRP_0283_2005

PATIENT
  Age: 47 Year
  Sex: Female

DRUGS (15)
  1. RIBASPHERE [Suspect]
     Indication: HEPATITIS C
     Dosage: DF PO
     Route: 048
     Dates: start: 20050617
  2. PEG-INTRON [Suspect]
     Indication: HEPATITIS C
     Dosage: DF SC
     Route: 058
     Dates: start: 20050617
  3. AMBIEN [Concomitant]
  4. CYTOMEL [Concomitant]
  5. EFFEXOR XR [Concomitant]
  6. LORAZEPAM [Concomitant]
  7. GYNODIOL [Concomitant]
  8. LISINOPRIL [Concomitant]
  9. LUMIGAN [Concomitant]
  10. TIMOLOL MALEATE [Concomitant]
  11. ALPHAGAN [Concomitant]
  12. CENTRUM [Concomitant]
  13. VITAMIN E [Concomitant]
  14. ASCORBIC ACID [Concomitant]
  15. CALCIUM CITRATE [Concomitant]

REACTIONS (1)
  - PARANOIA [None]
